FAERS Safety Report 5275870-8 (Version None)
Quarter: 2007Q1

REPORT INFORMATION
  Report Type: 
  Country: None (occurrence: None)
  Receive Date: 20061213
  Receipt Date: 20060607
  Transmission Date: 20070707
  Serious: Yes (Life-Threatening, Hospitalization)
  Sender: FDA-Public Use
  Company Number: 2006UW08825

PATIENT
  Age: 51 Year
  Sex: Female
  Weight: 56.246 kg

DRUGS (4)
  1. SEROQUEL [Suspect]
     Dosage: 300 MG; PO
     Route: 048
  2. LAMICTAL [Concomitant]
  3. VALIUM [Concomitant]
  4. LEXAPRO [Concomitant]

REACTIONS (4)
  - COMA [None]
  - OVERDOSE [None]
  - SUICIDE ATTEMPT [None]
  - THYROID DISORDER [None]
